FAERS Safety Report 5747603-X (Version None)
Quarter: 2008Q2

REPORT INFORMATION
  Report Type: 
  Country: None (occurrence: None)
  Receive Date: 20080523
  Receipt Date: 20080513
  Transmission Date: 20081010
  Serious: Yes (Hospitalization)
  Sender: FDA-Public Use
  Company Number: GB-GENENTECH-255164

PATIENT
  Sex: Female

DRUGS (3)
  1. BEVACIZUMAB [Suspect]
     Indication: OVARIAN CANCER
     Dosage: 523 MG, UNK
     Route: 042
     Dates: start: 20071203
  2. CARBOPLATIN [Suspect]
     Indication: OVARIAN CANCER
     Dosage: 520 MG, UNK
     Route: 042
     Dates: start: 20071203
  3. PACLITAXEL [Suspect]
     Indication: OVARIAN CANCER
     Dosage: 297 MG, UNK
     Route: 042
     Dates: start: 20071203

REACTIONS (2)
  - FEBRILE NEUTROPENIA [None]
  - NEUTROPENIA [None]
